FAERS Safety Report 9171899 (Version 1)
Quarter: 2013Q1

REPORT INFORMATION
  Report Type: Spontaneous
  Country: MX (occurrence: MX)
  Receive Date: 20130319
  Receipt Date: 20130319
  Transmission Date: 20140127
  Serious: Yes (Hospitalization)
  Sender: FDA-Public Use
  Company Number: PHHY2013MX025408

PATIENT
  Age: 77 Year
  Sex: Male

DRUGS (1)
  1. ONBREZ [Suspect]
     Indication: ASTHMA
     Dosage: 150 UG, UNK
     Dates: start: 20130111, end: 20130118

REACTIONS (5)
  - Bone marrow disorder [Not Recovered/Not Resolved]
  - Eating disorder [Not Recovered/Not Resolved]
  - Throat tightness [Unknown]
  - Dyspnoea [Unknown]
  - Off label use [Unknown]
